FAERS Safety Report 24236364 (Version 1)
Quarter: 2024Q3

REPORT INFORMATION
  Report Type: Spontaneous
  Country: CH (occurrence: CH)
  Receive Date: 20240822
  Receipt Date: 20240822
  Transmission Date: 20241017
  Serious: Yes (Other)
  Sender: GLAXOSMITHKLINE
  Company Number: CH-GLAXOSMITHKLINE-CH2024102302

PATIENT

DRUGS (1)
  1. BENLYSTA [Suspect]
     Active Substance: BELIMUMAB
     Indication: Sjogren^s syndrome
     Dosage: UNK

REACTIONS (3)
  - Leukopenia [Unknown]
  - Condition aggravated [Unknown]
  - Product use in unapproved indication [Unknown]
